FAERS Safety Report 5638767-7 (Version None)
Quarter: 2008Q1

REPORT INFORMATION
  Report Type: 
  Country: None (occurrence: None)
  Receive Date: 20080222
  Receipt Date: 20080208
  Transmission Date: 20080703
  Serious: Yes (Hospitalization, Other)
  Sender: FDA-Public Use
  Company Number: 2008JP000788

PATIENT
  Age: 9 Year
  Sex: Female

DRUGS (7)
  1. TACROLIMUS [Suspect]
     Indication: LIVER TRANSPLANT
  2. METHYLPREDNISOLONE [Concomitant]
  3. AZATHIOPRINE INJECTION [Concomitant]
  4. GANCICLOVIR (GANCICLOVIR) INJECTION [Concomitant]
  5. PREDNISONE TAB [Concomitant]
  6. COTRIM [Concomitant]
  7. VALACYCLOVIR [Concomitant]

REACTIONS (10)
  - BILE DUCT OBSTRUCTION [None]
  - CHEST PAIN [None]
  - CYTOMEGALOVIRUS OESOPHAGITIS [None]
  - HAEMOLYTIC ANAEMIA [None]
  - LYMPHOPENIA [None]
  - PYREXIA [None]
  - RASH MACULO-PAPULAR [None]
  - RENAL FAILURE [None]
  - SMALL INTESTINAL OBSTRUCTION [None]
  - UPPER RESPIRATORY TRACT INFECTION [None]
